FAERS Safety Report 7319003-2 (Version None)
Quarter: 2011Q1

REPORT INFORMATION
  Report Type: 
  Country: None (occurrence: None)
  Receive Date: 20110216
  Receipt Date: 20110201
  Transmission Date: 20110831
  Serious: Yes (Disabling)
  Sender: FDA-Public Use
  Company Number: LIT-11-0002

PATIENT
  Age: 35 Year
  Sex: Female

DRUGS (1)
  1. LIDOCAINE [Suspect]
     Indication: SPINAL ANAESTHESIA
     Dosage: SINGLE DOSE/LUMBAR PUNCT

REACTIONS (9)
  - URINARY RETENTION [None]
  - ASTHENIA [None]
  - TOXICITY TO VARIOUS AGENTS [None]
  - INJURY ASSOCIATED WITH DEVICE [None]
  - AREFLEXIA [None]
  - NEUROPATHY PERIPHERAL [None]
  - SENSORY LOSS [None]
  - NERVOUS SYSTEM DISORDER [None]
  - SPINAL CORD ISCHAEMIA [None]
